FAERS Safety Report 6681246-9 (Version None)
Quarter: 2010Q2

REPORT INFORMATION
  Report Type: 
  Country: None (occurrence: None)
  Receive Date: 20100414
  Receipt Date: 20090807
  Transmission Date: 20101027
  Serious: No
  Sender: FDA-Public Use
  Company Number: US-KINGPHARMUSA00001-K200900942

PATIENT
  Age: 61 Year
  Sex: Male
  Weight: 158.73 kg

DRUGS (6)
  1. SKELAXIN [Suspect]
     Indication: MUSCULOSKELETAL STIFFNESS
     Dosage: 800 MG, TID
     Route: 048
     Dates: start: 20090730, end: 20090804
  2. CYMBALTA [Concomitant]
     Dosage: UNK
     Route: 048
  3. IBUPROFEN [Concomitant]
     Indication: MUSCULOSKELETAL STIFFNESS
     Dosage: UNK
     Route: 048
  4. TYLENOL-500 [Concomitant]
     Indication: MUSCULOSKELETAL STIFFNESS
     Dosage: UNK
     Route: 048
  5. FISH OIL [Concomitant]
     Dosage: UNK
     Route: 048
  6. ANTIHYPERTENSIVES [Concomitant]
     Indication: HYPERTENSION
     Route: 048

REACTIONS (1)
  - URTICARIA [None]
